FAERS Safety Report 4526008-3 (Version None)
Quarter: 2004Q4

REPORT INFORMATION
  Report Type: 
  Country: None (occurrence: None)
  Receive Date: 20041213
  Receipt Date: 20041213
  Transmission Date: 20050328
  Serious: Yes (Other)
  Sender: FDA-Public Use
  Company Number: None

PATIENT
  Age: 36 Year
  Sex: Male
  Weight: 68.0396 kg

DRUGS (1)
  1. MUCINEX [Suspect]
     Dosage: 1 TO 2 TABS  EVERY 12 HOURS

REACTIONS (2)
  - DIZZINESS POSTURAL [None]
  - HEART RATE INCREASED [None]
